FAERS Safety Report 20538924 (Version 1)
Quarter: 2022Q1

REPORT INFORMATION
  Report Type: Spontaneous
  Country: CA (occurrence: CA)
  Receive Date: 20220302
  Receipt Date: 20220302
  Transmission Date: 20220423
  Serious: Yes (Other)
  Sender: FDA-Public Use
  Company Number: CA-JNJFOC-20210942001

PATIENT
  Age: 67 Year
  Sex: Female
  Weight: 46 kg

DRUGS (3)
  1. REMICADE [Suspect]
     Active Substance: INFLIXIMAB
     Indication: Crohn^s disease
     Route: 042
  2. HYDROXYUREA [Concomitant]
     Active Substance: HYDROXYUREA
     Route: 065
  3. MORPHINE SULFATE [Concomitant]
     Active Substance: MORPHINE SULFATE
     Route: 065

REACTIONS (3)
  - Weight decreased [Unknown]
  - Malaise [Unknown]
  - Product dose omission issue [Unknown]
